FAERS Safety Report 6558824-0 (Version None)
Quarter: 2010Q1

REPORT INFORMATION
  Report Type: 
  Country: None (occurrence: None)
  Receive Date: 20100129
  Receipt Date: 20100120
  Transmission Date: 20100710
  Serious: Yes (Hospitalization)
  Sender: FDA-Public Use
  Company Number: PHHY2010FR03508

PATIENT
  Age: 85 Year
  Sex: Female

DRUGS (9)
  1. EXELON [Suspect]
  2. EXTENCILLINE [Suspect]
     Dosage: UNK
     Dates: start: 20090908, end: 20090912
  3. ZESTORETIC [Concomitant]
  4. LEVOTHYROXINE SODIUM [Concomitant]
  5. TRIVASTAL [Concomitant]
  6. LASILIX [Concomitant]
     Dosage: UNK
  7. LASILIX [Concomitant]
     Dosage: 40 MG, UNK
  8. DIFFU K [Concomitant]
  9. NUREFLEX [Concomitant]

REACTIONS (3)
  - EOSINOPHILIA [None]
  - RASH MACULO-PAPULAR [None]
  - TOXIC SKIN ERUPTION [None]
